FAERS Safety Report 5624986-2 (Version None)
Quarter: 2008Q1

REPORT INFORMATION
  Report Type: 
  Country: None (occurrence: None)
  Receive Date: 20080213
  Receipt Date: 20080201
  Transmission Date: 20080703
  Serious: Yes (Other)
  Sender: FDA-Public Use
  Company Number: US-PFIZER INC-2007085544

PATIENT
  Sex: Male

DRUGS (1)
  1. CHANTIX [Suspect]

REACTIONS (4)
  - BLOOD PRESSURE DECREASED [None]
  - DEHYDRATION [None]
  - HEART RATE IRREGULAR [None]
  - UNRESPONSIVE TO STIMULI [None]
